FAERS Safety Report 15381504 (Version 3)
Quarter: 2018Q4

REPORT INFORMATION
  Report Type: Spontaneous
  Country: US (occurrence: US)
  Receive Date: 20180913
  Receipt Date: 20181120
  Transmission Date: 20190204
  Serious: Yes (Hospitalization, Other)
  Sender: FDA-Public Use
  Company Number: US-ASTELLAS-2018US004310

PATIENT
  Age: 79 Year
  Sex: Male

DRUGS (1)
  1. XTANDI [Suspect]
     Active Substance: ENZALUTAMIDE
     Indication: PROSTATE CANCER
     Route: 048

REACTIONS (15)
  - Abdominal discomfort [Not Recovered/Not Resolved]
  - Spinal disorder [Not Recovered/Not Resolved]
  - Peripheral swelling [Recovered/Resolved]
  - Hyperhidrosis [Not Recovered/Not Resolved]
  - Insomnia [Not Recovered/Not Resolved]
  - Epistaxis [Unknown]
  - Sepsis [Unknown]
  - Fatigue [Not Recovered/Not Resolved]
  - Amnesia [Unknown]
  - Joint swelling [Not Recovered/Not Resolved]
  - Arthropathy [Not Recovered/Not Resolved]
  - Arthralgia [Not Recovered/Not Resolved]
  - Feeling hot [Not Recovered/Not Resolved]
  - Diarrhoea [Unknown]
  - Pollakiuria [Unknown]

NARRATIVE: CASE EVENT DATE: 20180322
